FAERS Safety Report 4280087-X (Version None)
Quarter: 2004Q1

REPORT INFORMATION
  Report Type: 
  Country: None (occurrence: None)
  Receive Date: 20040126
  Receipt Date: 20040107
  Transmission Date: 20041129
  Serious: Yes (Hospitalization)
  Sender: FDA-Public Use
  Company Number: 200311268JP

PATIENT
  Age: 69 Year
  Sex: Female

DRUGS (4)
  1. ALLEGRA [Suspect]
     Indication: RHINITIS ALLERGIC
     Dosage: 120 MG/DAY PO
     Route: 048
     Dates: start: 20030908, end: 20030916
  2. RAMATROBAN (BAYNAS) [Concomitant]
  3. CARBOCISTEINE (MUCODYNE) [Concomitant]
  4. CLARITHROMYCIN [Concomitant]

REACTIONS (4)
  - ABDOMINAL PAIN UPPER [None]
  - BACK PAIN [None]
  - HAEMANGIOMA OF LIVER [None]
  - HEPATIC FUNCTION ABNORMAL [None]
